FAERS Safety Report 24403031 (Version 1)
Quarter: 2024Q4

REPORT INFORMATION
  Report Type: Spontaneous
  Country: US (occurrence: US)
  Receive Date: 20241007
  Receipt Date: 20241007
  Transmission Date: 20250115
  Serious: No
  Sender: ROCHE
  Company Number: US-ROCHE-3470933

PATIENT
  Age: 22 Year
  Sex: Female
  Weight: 46.27 kg

DRUGS (1)
  1. GAZYVA [Suspect]
     Active Substance: OBINUTUZUMAB
     Indication: Hepatitis B
     Dosage: THIS IS A ONE TIME ORDER. THE PATIENT HAS NOT RECEIVED THE FIRST DOSE. ;ONGOING: UNKNOWN
     Route: 042

REACTIONS (3)
  - Intercepted product storage error [Unknown]
  - No adverse event [Unknown]
  - Off label use [Unknown]

NARRATIVE: CASE EVENT DATE: 20231204
